FAERS Safety Report 6540387-7 (Version None)
Quarter: 2010Q1

REPORT INFORMATION
  Report Type: 
  Country: None (occurrence: None)
  Receive Date: 20100113
  Receipt Date: 20091230
  Transmission Date: 20100710
  Serious: Yes (Other)
  Sender: FDA-Public Use
  Company Number: CIP09003610

PATIENT
  Sex: 0

DRUGS (2)
  1. ACTONEL [Suspect]
     Dosage: ORAL
     Route: 048
     Dates: start: 20071130
  2. FOSAMAX [Suspect]
     Dates: start: 19980101, end: 20070901

REACTIONS (5)
  - FEMUR FRACTURE [None]
  - LOW TURNOVER OSTEOPATHY [None]
  - OSTEOPOROSIS [None]
  - PATHOLOGICAL FRACTURE [None]
  - STRESS FRACTURE [None]
